FAERS Safety Report 11644039 (Version 1)
Quarter: 2015Q4

REPORT INFORMATION
  Report Type: Spontaneous
  Country: US (occurrence: None)
  Receive Date: 20151019
  Receipt Date: 20151019
  Transmission Date: 20160304
  Serious: Yes (Life-Threatening, Hospitalization)
  Sender: FDA-Public Use
  Company Number: None

PATIENT
  Age: 25 Year
  Sex: Female
  Weight: 96.16 kg

DRUGS (6)
  1. AZURETTE [Suspect]
     Active Substance: DESOGESTREL\ETHINYL ESTRADIOL
     Indication: MENORRHAGIA
     Route: 048
     Dates: start: 20150607, end: 20150921
  2. TOPAMAX [Concomitant]
     Active Substance: TOPIRAMATE
  3. PROMETHAZINE [Concomitant]
     Active Substance: PROMETHAZINE\PROMETHAZINE HYDROCHLORIDE
  4. VITAMIN D3 [Concomitant]
     Active Substance: CHOLECALCIFEROL
  5. MULTIVITAMIN [Concomitant]
     Active Substance: VITAMINS
  6. WARFARIN [Concomitant]
     Active Substance: WARFARIN

REACTIONS (2)
  - Pulmonary embolism [None]
  - Thrombosis [None]

NARRATIVE: CASE EVENT DATE: 20150923
